FAERS Safety Report 7214628-7 (Version None)
Quarter: 2011Q1

REPORT INFORMATION
  Report Type: 
  Country: None (occurrence: None)
  Receive Date: 20110105
  Receipt Date: 20110105
  Transmission Date: 20110831
  Serious: Yes (Life-Threatening)
  Sender: FDA-Public Use
  Company Number: None

PATIENT
  Age: 38 Year
  Sex: Female

DRUGS (8)
  1. VERAPAMIL [Concomitant]
  2. CHLORTHALIDONE [Concomitant]
  3. SPRINTEC [Concomitant]
  4. TYLENOL-500 [Concomitant]
  5. PREDNISONE [Concomitant]
  6. ZOLOFT [Concomitant]
  7. LISINOPRIL [Suspect]
     Indication: HYPERTENSION
     Dosage: 20 MG DAILY PO
     Route: 048
  8. MULTIVIT. [Concomitant]

REACTIONS (4)
  - ANGIOEDEMA [None]
  - DYSPNOEA [None]
  - SWELLING [None]
  - SPEECH DISORDER [None]
